FAERS Safety Report 12598469 (Version 1)
Quarter: 2016Q3

REPORT INFORMATION
  Report Type: Spontaneous
  Country: US (occurrence: US)
  Receive Date: 20160726
  Receipt Date: 20160726
  Transmission Date: 20161109
  Serious: Yes (Hospitalization, Other)
  Sender: FDA-Public Use
  Company Number: US-ALLERGAN-1653583US

PATIENT
  Age: 67 Year
  Sex: Female

DRUGS (1)
  1. LUMIGAN [Suspect]
     Active Substance: BIMATOPROST
     Indication: INTRAOCULAR PRESSURE INCREASED
     Dosage: 2 GTT, QHS
     Route: 047
     Dates: start: 2006

REACTIONS (4)
  - Spinal disorder [Unknown]
  - Eye irritation [Not Recovered/Not Resolved]
  - Cerebrovascular accident [Unknown]
  - Cataract [Unknown]

NARRATIVE: CASE EVENT DATE: 20160522
